FAERS Safety Report 21246465 (Version 1)
Quarter: 2022Q3

REPORT INFORMATION
  Report Type: Spontaneous
  Country: US (occurrence: US)
  Receive Date: 20220824
  Receipt Date: 20220824
  Transmission Date: 20221026
  Serious: Yes (Other)
  Sender: FDA-Public Use
  Company Number: US-BAYER-2022P011418

PATIENT
  Age: 54 Year
  Sex: Male

DRUGS (1)
  1. EYLEA [Suspect]
     Active Substance: AFLIBERCEPT
     Indication: Subretinal fluid
     Dosage: 1 DF, Q4WK, SOLUTION FOR INJECTION

REACTIONS (2)
  - Retinal oedema [Unknown]
  - Off label use [Unknown]
